FAERS Safety Report 8162395-5 (Version None)
Quarter: 2012Q1

REPORT INFORMATION
  Report Type: 
  Country: None (occurrence: None)
  Receive Date: 20120224
  Receipt Date: 20120214
  Transmission Date: 20120608
  Serious: Yes (Hospitalization, Other)
  Sender: FDA-Public Use
  Company Number: US-ELI_LILLY_AND_COMPANY-US201003007904

PATIENT
  Sex: Female

DRUGS (8)
  1. FORTEO [Suspect]
     Dosage: 20 UG, DAILY (1/D)
     Route: 058
  2. HYDROCHLOROTHIAZIDE [Concomitant]
  3. FORTEO [Suspect]
     Dosage: 20 UG, DAILY (1/D)
     Route: 058
     Dates: start: 20110101, end: 20111228
  4. CORTISONE ACETATE [Concomitant]
     Dosage: UNK, OTHER
  5. GABAPENTIN [Concomitant]
  6. FORTEO [Suspect]
     Indication: OSTEOPOROSIS
     Dosage: 20 UG, DAILY (1/D)
     Route: 058
     Dates: start: 20100601
  7. FORTEO [Suspect]
     Dosage: 20 UG, DAILY (1/D)
     Route: 058
  8. FORTEO [Suspect]
     Dosage: 20 UG, DAILY (1/D)
     Route: 058
     Dates: end: 20100101

REACTIONS (9)
  - SPONDYLOLISTHESIS [None]
  - SPINAL CORD COMPRESSION [None]
  - BACK PAIN [None]
  - NERVE COMPRESSION [None]
  - PAIN [None]
  - PAIN IN EXTREMITY [None]
  - FALL [None]
  - INJECTION SITE RASH [None]
  - INJECTION SITE ERYTHEMA [None]
